FAERS Safety Report 8625010-X (Version None)
Quarter: 2012Q3

REPORT INFORMATION
  Report Type: 
  Country: None (occurrence: None)
  Receive Date: 20120827
  Receipt Date: 20120823
  Transmission Date: 20120928
  Serious: Yes (Other)
  Sender: FDA-Public Use
  Company Number: PHHO2012US012284

PATIENT
  Sex: Female
  Weight: 53.8 kg

DRUGS (2)
  1. IMATINIB MESYLATE [Suspect]
     Indication: NEUROFIBROMA
     Dosage: 200 MG, BID
     Route: 048
     Dates: start: 20120304, end: 20120424
  2. ALPRAZOLAM [Concomitant]
     Indication: ANXIETY
     Dosage: 0.25 MG, PRN
     Route: 048
     Dates: start: 20111110

REACTIONS (1)
  - VASCULAR PSEUDOANEURYSM [None]
